FAERS Safety Report 25968422 (Version 1)
Quarter: 2025Q4

REPORT INFORMATION
  Report Type: Spontaneous
  Country: EU (occurrence: EU)
  Receive Date: 20251028
  Receipt Date: 20251028
  Transmission Date: 20260118
  Serious: Yes (Hospitalization, Disabling, Congenital Anomaly)
  Sender: RANBAXY
  Company Number: EU-EMB-M202400873-1

PATIENT
  Sex: Male
  Weight: 3.2 kg

DRUGS (2)
  1. VENLAFAXINE [Suspect]
     Active Substance: VENLAFAXINE HYDROCHLORIDE
     Indication: Product used for unknown indication
     Dosage: 150 MILLIGRAM, DAILY
     Route: 064
     Dates: start: 202211, end: 202308
  2. LORAZEPAM [Suspect]
     Active Substance: LORAZEPAM
     Indication: Product used for unknown indication
     Dosage: FROM THE BEGINNING UNTIL GESTATIONAL WEEK 17, DECREASED STEP BY STEP
     Route: 064

REACTIONS (2)
  - Talipes [Recovered/Resolved with Sequelae]
  - Foetal exposure during pregnancy [Unknown]
